FAERS Safety Report 10891472 (Version 2)
Quarter: 2015Q3

REPORT INFORMATION
  Report Type: Spontaneous
  Country: US (occurrence: US)
  Receive Date: 20150306
  Receipt Date: 20150714
  Transmission Date: 20151125
  Serious: Yes (Hospitalization)
  Sender: FDA-Public Use
  Company Number: US-BIOGENIDEC-2015BI025564

PATIENT
  Age: 48 Year
  Sex: Female

DRUGS (1)
  1. AVONEX [Suspect]
     Active Substance: INTERFERON BETA-1A
     Indication: MULTIPLE SCLEROSIS
     Route: 030
     Dates: start: 20141229, end: 201507

REACTIONS (3)
  - Multiple sclerosis [Recovered/Resolved]
  - Multiple sclerosis relapse [Unknown]
  - Urinary retention [Recovered/Resolved]

NARRATIVE: CASE EVENT DATE: 20150213
